FAERS Safety Report 22372956 (Version 1)
Quarter: 2023Q2

REPORT INFORMATION
  Report Type: Spontaneous
  Country: AU (occurrence: None)
  Receive Date: 20230526
  Receipt Date: 20230526
  Transmission Date: 20230722
  Serious: Yes (Other)
  Sender: FDA-Public Use
  Company Number: 2023A120469

PATIENT
  Age: 80 Year
  Sex: Female

DRUGS (3)
  1. QUETIAPINE [Suspect]
     Active Substance: QUETIAPINE
     Indication: Product used for unknown indication
  2. APOMORPHINE HYDROCHLORIDE [Suspect]
     Active Substance: APOMORPHINE HYDROCHLORIDE
     Indication: Product used for unknown indication
  3. CARBIDOPA MONOHYDRATE/LEVODOPA [Concomitant]

REACTIONS (4)
  - Choking [Unknown]
  - Peripheral swelling [Unknown]
  - Fall [Unknown]
  - Drooling [Unknown]
